FAERS Safety Report 12360173 (Version 2)
Quarter: 2016Q2

REPORT INFORMATION
  Report Type: Spontaneous
  Country: FR (occurrence: FR)
  Receive Date: 20160512
  Receipt Date: 20160621
  Transmission Date: 20160815
  Serious: Yes (Other)
  Sender: FDA-Public Use
  Company Number: FR-PFIZER INC-2016243143

PATIENT
  Age: 50 Year
  Sex: Male

DRUGS (4)
  1. DETICENE [Suspect]
     Active Substance: DACARBAZINE
     Indication: HODGKIN^S DISEASE
     Dosage: UNK UNK, CYCLIC
     Route: 042
     Dates: start: 20140703, end: 20150309
  2. ADRIBLASTINE [Suspect]
     Active Substance: DOXORUBICIN
     Indication: HODGKIN^S DISEASE
     Dosage: UNK UNK, CYCLIC
     Route: 042
     Dates: start: 20140703, end: 20150309
  3. BLEOMYCIN [Suspect]
     Active Substance: BLEOMYCIN SULFATE
     Indication: HODGKIN^S DISEASE
     Dosage: UNK UNK, CYCLIC
     Route: 042
     Dates: start: 20140703, end: 20150309
  4. VELBE [Suspect]
     Active Substance: VINBLASTINE SULFATE
     Indication: HODGKIN^S DISEASE
     Dosage: UNK UNK, CYCLIC
     Route: 042
     Dates: start: 20140703, end: 20150309

REACTIONS (8)
  - Neuropathy peripheral [Unknown]
  - Arthropathy [Unknown]
  - Raynaud^s phenomenon [Not Recovered/Not Resolved]
  - Nausea [Unknown]
  - Paraesthesia [Not Recovered/Not Resolved]
  - Functional gastrointestinal disorder [Unknown]
  - Myalgia [Unknown]
  - Hypoaesthesia [Unknown]

NARRATIVE: CASE EVENT DATE: 20140814
